FAERS Safety Report 24356013 (Version 2)
Quarter: 2024Q3

REPORT INFORMATION
  Report Type: Spontaneous
  Country: US (occurrence: US)
  Receive Date: 20240924
  Receipt Date: 20240925
  Transmission Date: 20241016
  Serious: Yes (Death)
  Sender: JOHNSON AND JOHNSON
  Company Number: US-JNJFOC-20240952291

PATIENT
  Age: 59 Year
  Sex: Male

DRUGS (2)
  1. ACETAMINOPHEN [Suspect]
     Active Substance: ACETAMINOPHEN
     Indication: Product used for unknown indication
     Route: 065
  2. BUPROPION [Suspect]
     Active Substance: BUPROPION
     Indication: Product used for unknown indication
     Route: 065

REACTIONS (13)
  - Toxicity to various agents [Fatal]
  - Anion gap [Fatal]
  - Acute kidney injury [Fatal]
  - Cardiac arrest [Fatal]
  - Coma [Fatal]
  - Depressed level of consciousness [Fatal]
  - Coagulopathy [Fatal]
  - Hepatotoxicity [Fatal]
  - Hypotension [Fatal]
  - Metabolic acidosis [Fatal]
  - Thrombocytopenia [Fatal]
  - Respiratory depression [Fatal]
  - Tachycardia [Fatal]
